FAERS Safety Report 9345675 (Version 1)
Quarter: 2013Q2

REPORT INFORMATION
  Report Type: Report from Study
  Country: AR (occurrence: AR)
  Receive Date: 20130613
  Receipt Date: 20130613
  Transmission Date: 20140414
  Serious: Yes (Other)
  Sender: FDA-Public Use
  Company Number: PHHY2013AR058844

PATIENT
  Sex: Male

DRUGS (2)
  1. LUCENTIS [Suspect]
  2. RASILEZ [Suspect]

REACTIONS (2)
  - Hearing impaired [Unknown]
  - Deafness [Unknown]
